FAERS Safety Report 7762983-1 (Version None)
Quarter: 2011Q3

REPORT INFORMATION
  Report Type: 
  Country: None (occurrence: None)
  Receive Date: 20110920
  Receipt Date: 20110912
  Transmission Date: 20111222
  Serious: Yes (Hospitalization, Disabling, Other)
  Sender: FDA-Public Use
  Company Number: DE-JNJFOC-20110900582

PATIENT
  Age: 66 Year
  Sex: Male

DRUGS (6)
  1. LEVOFLOXACIN [Suspect]
     Indication: URINARY TRACT INFECTION
     Route: 048
     Dates: start: 20110519, end: 20110525
  2. LEVOFLOXACIN [Suspect]
     Route: 048
     Dates: start: 20110519, end: 20110525
  3. OTHER ANTIBIOTICS [Concomitant]
     Route: 065
  4. TAMSULOSIN HCL [Concomitant]
     Route: 065
     Dates: start: 20110501
  5. LEVOFLOXACIN [Suspect]
     Route: 048
     Dates: start: 20110527, end: 20110601
  6. LEVOFLOXACIN [Suspect]
     Indication: PROSTATITIS
     Route: 048
     Dates: start: 20110527, end: 20110601

REACTIONS (6)
  - TENDONITIS [None]
  - CLAVICLE FRACTURE [None]
  - TENDON RUPTURE [None]
  - TENDON DISORDER [None]
  - HEADACHE [None]
  - TENDON PAIN [None]
